FAERS Safety Report 4278223-4 (Version None)
Quarter: 2004Q1

REPORT INFORMATION
  Report Type: 
  Country: None (occurrence: None)
  Receive Date: 20040123
  Receipt Date: 20030926
  Transmission Date: 20041129
  Serious: Yes (Disabling, Other)
  Sender: FDA-Public Use
  Company Number: GB-BRISTOL-MYERS SQUIBB COMPANY-12396289

PATIENT
  Age: 36 Year
  Sex: Female
  Weight: 50 kg

DRUGS (7)
  1. VIDEX [Suspect]
     Indication: HIV INFECTION
     Route: 048
     Dates: start: 20030814, end: 20030926
  2. KALETRA [Suspect]
     Indication: HIV INFECTION
     Route: 048
     Dates: start: 20030814, end: 20030926
  3. ZIAGEN [Suspect]
     Indication: HIV INFECTION
     Route: 048
     Dates: start: 20030814, end: 20030926
  4. COMBIVIR [Concomitant]
     Dates: start: 20020401
  5. NEVIRAPINE [Concomitant]
     Dates: start: 20020401
  6. TRIZIVIR [Concomitant]
     Dosage: DOSAGE FORM: TABLET
     Route: 048
  7. LOPINAVIR [Concomitant]
     Dosage: DOSAGE FORM: TABLET
     Route: 048

REACTIONS (4)
  - ASTHENIA [None]
  - DEAFNESS [None]
  - GAIT DISTURBANCE [None]
  - NEUROPATHY PERIPHERAL [None]
